FAERS Safety Report 20099936 (Version 1)
Quarter: 2021Q4

REPORT INFORMATION
  Report Type: Spontaneous
  Country: US (occurrence: US)
  Receive Date: 20211123
  Receipt Date: 20211123
  Transmission Date: 20220303
  Serious: No
  Sender: FDA-Public Use
  Company Number: US-BEH-2021138624

PATIENT
  Sex: Male

DRUGS (2)
  1. PRIVIGEN [Suspect]
     Active Substance: HUMAN IMMUNOGLOBULIN G
     Indication: Chronic inflammatory demyelinating polyradiculoneuropathy
     Dosage: 40 GRAM, QD FOR 5 DAYS, EVERY 4 WEEKS
     Route: 042
     Dates: start: 202111
  2. PRIVIGEN [Suspect]
     Active Substance: HUMAN IMMUNOGLOBULIN G
     Dosage: 10 GRAM, QD FOR 5 DAYS, EVERY 4 WEEKS
     Route: 042
     Dates: start: 202111

REACTIONS (2)
  - Chest discomfort [Unknown]
  - Dyspnoea [Unknown]
